FAERS Safety Report 20528775 (Version 4)
Quarter: 2022Q2

REPORT INFORMATION
  Report Type: Report from Study
  Country: CA (occurrence: CA)
  Receive Date: 20220228
  Receipt Date: 20220421
  Transmission Date: 20220721
  Serious: Yes (Death, Other)
  Sender: FDA-Public Use
  Company Number: CA-OTSUKA-2022_009649

PATIENT
  Age: 61 Year
  Sex: Male

DRUGS (1)
  1. CEDAZURIDINE\DECITABINE [Suspect]
     Active Substance: CEDAZURIDINE\DECITABINE
     Indication: Myelodysplastic syndrome
     Dosage: 5 TABLETS
     Route: 065
     Dates: start: 20220124

REACTIONS (7)
  - Death [Fatal]
  - Platelet transfusion [Unknown]
  - Red blood cell transfusion [Unknown]
  - Platelet count decreased [Unknown]
  - Biopsy bone marrow [Unknown]
  - Haemorrhoids [Unknown]
  - Constipation [Unknown]

NARRATIVE: CASE EVENT DATE: 20220222
